FAERS Safety Report 7538718-4 (Version None)
Quarter: 2011Q2

REPORT INFORMATION
  Report Type: 
  Country: None (occurrence: None)
  Receive Date: 20110610
  Receipt Date: 20110608
  Transmission Date: 20111010
  Serious: No
  Sender: FDA-Public Use
  Company Number: US-PFIZER INC-2011114222

PATIENT
  Sex: Male

DRUGS (2)
  1. DIFLUCAN [Suspect]
     Indication: PRURITUS GENITAL
     Dosage: 200 MG, UNK
  2. DIFLUCAN [Suspect]
     Dosage: 100 MG, 1X/DAY

REACTIONS (1)
  - DRUG INEFFECTIVE [None]
